FAERS Safety Report 9970287 (Version 2)
Quarter: 2014Q1

REPORT INFORMATION
  Report Type: Spontaneous
  Country: JP (occurrence: JP)
  Receive Date: 20140306
  Receipt Date: 20140313
  Transmission Date: 20141002
  Serious: Yes (Other)
  Sender: FDA-Public Use
  Company Number: JP-SA-2014SA024741

PATIENT
  Age: 61 Year
  Sex: Male

DRUGS (4)
  1. DELLEGRA [Suspect]
     Indication: RHINITIS ALLERGIC
     Dosage: DOSE: 120MG/240MG
     Route: 048
     Dates: start: 20131118, end: 20140111
  2. TENORMIN [Suspect]
     Indication: PRODUCT USED FOR UNKNOWN INDICATION
     Route: 065
  3. NORVASC [Suspect]
     Indication: PRODUCT USED FOR UNKNOWN INDICATION
     Route: 065
  4. MEVALOTIN [Suspect]
     Indication: PRODUCT USED FOR UNKNOWN INDICATION
     Route: 065

REACTIONS (1)
  - Myocardial infarction [Unknown]
